FAERS Safety Report 26002838 (Version 1)
Quarter: 2025Q4

REPORT INFORMATION
  Report Type: Report from Study
  Country: AR (occurrence: AR)
  Receive Date: 20251106
  Receipt Date: 20251106
  Transmission Date: 20260118
  Serious: Yes (Hospitalization)
  Sender: JOHNSON AND JOHNSON
  Company Number: AR-BAYER-2025A146089

PATIENT
  Age: 54 Year
  Sex: Female

DRUGS (1)
  1. VENTAVIS [Suspect]
     Active Substance: ILOPROST
     Indication: Hepatopulmonary syndrome
     Dosage: 2.5 (6 TIMES PER DAY)
     Route: 055
     Dates: start: 20251103

REACTIONS (1)
  - Off label use [Not Recovered/Not Resolved]
